FAERS Safety Report 7536307-9 (Version None)
Quarter: 2011Q2

REPORT INFORMATION
  Report Type: 
  Country: None (occurrence: None)
  Receive Date: 20110609
  Receipt Date: 20110604
  Transmission Date: 20111010
  Serious: Yes (Other)
  Sender: FDA-Public Use
  Company Number: JP-BRACCO-004892

PATIENT
  Age: 52 Year
  Sex: Female

DRUGS (2)
  1. IOPAMIDOL [Suspect]
     Indication: INTRACRANIAL ANEURYSM
     Route: 042
     Dates: start: 20110601, end: 20110601
  2. IOPAMIDOL [Suspect]
     Indication: COMPUTERISED TOMOGRAM HEAD
     Route: 042
     Dates: start: 20110601, end: 20110601

REACTIONS (2)
  - APHONIA [None]
  - MOBILITY DECREASED [None]
